FAERS Safety Report 6980429-8 (Version None)
Quarter: 2010Q3

REPORT INFORMATION
  Report Type: 
  Country: None (occurrence: None)
  Receive Date: 20100914
  Receipt Date: 20100617
  Transmission Date: 20110219
  Serious: No
  Sender: FDA-Public Use
  Company Number: US-ABBOTT-10P-163-0653278-00

PATIENT
  Age: 9 Year
  Sex: Male

DRUGS (6)
  1. DEPAKOTE [Suspect]
     Indication: AGGRESSION
     Dates: end: 20100401
  2. DEPAKOTE [Suspect]
     Indication: MOOD SWINGS
     Dosage: 750 MG IN AM, 500MG IN EVENING
     Route: 048
     Dates: start: 20100401, end: 20100501
  3. DEPAKOTE [Suspect]
     Dates: start: 20100501, end: 20100601
  4. DEPAKOTE [Suspect]
     Dosage: 750 MG IN AM, 500MG IN EVENING
     Dates: start: 20100601
  5. STRATTERA [Concomitant]
     Indication: PRODUCT USED FOR UNKNOWN INDICATION
  6. CONCERTA [Concomitant]
     Indication: PRODUCT USED FOR UNKNOWN INDICATION

REACTIONS (2)
  - DRUG LEVEL BELOW THERAPEUTIC [None]
  - DRUG LEVEL DECREASED [None]
